FAERS Safety Report 11139508 (Version 2)
Quarter: 2015Q3

REPORT INFORMATION
  Report Type: Spontaneous
  Country: US (occurrence: US)
  Receive Date: 20150527
  Receipt Date: 20150729
  Transmission Date: 20151125
  Serious: Yes (Hospitalization, Other)
  Sender: FDA-Public Use
  Company Number: US-PFIZER INC-2015174749

PATIENT
  Age: 42 Year
  Sex: Male
  Weight: 100 kg

DRUGS (9)
  1. AMITRIPTYLINE [Concomitant]
     Active Substance: AMITRIPTYLINE
     Dosage: 25 MG, DAILY
     Route: 048
  2. NEXIUM [Concomitant]
     Active Substance: ESOMEPRAZOLE MAGNESIUM
     Dosage: 40 MG, DAILY
     Route: 048
  3. CLOPIDOGREL BISULFATE. [Concomitant]
     Active Substance: CLOPIDOGREL BISULFATE
     Dosage: 75 MG, DAILY
     Route: 048
  4. ASPIRIN. [Concomitant]
     Active Substance: ASPIRIN
     Dosage: 81 MG, DAILY
     Route: 048
  5. ATORVASTATIN CALCIUM. [Concomitant]
     Active Substance: ATORVASTATIN CALCIUM
     Dosage: 80 MG, DAILY
  6. CARVEDILOL. [Concomitant]
     Active Substance: CARVEDILOL
     Dosage: 12.5 MG, 2X/DAY
     Route: 048
  7. CYMBALTA [Concomitant]
     Active Substance: DULOXETINE HYDROCHLORIDE
     Dosage: 30 MG, 2X/DAY
     Route: 048
  8. XANAX XR [Suspect]
     Active Substance: ALPRAZOLAM
     Dosage: 1 MG, DAILY
     Route: 048
     Dates: start: 2006
  9. RANEXA [Concomitant]
     Active Substance: RANOLAZINE
     Dosage: 500 MG, DAILY
     Route: 048

REACTIONS (5)
  - Myocardial infarction [Unknown]
  - Fall [Unknown]
  - Spinal cord disorder [Unknown]
  - Intervertebral disc disorder [Unknown]
  - Rib fracture [Unknown]

NARRATIVE: CASE EVENT DATE: 200602
